FAERS Safety Report 9698559 (Version 2)
Quarter: 2013Q4

REPORT INFORMATION
  Report Type: Spontaneous
  Country: US (occurrence: None)
  Receive Date: 20131115
  Receipt Date: 20131122
  Transmission Date: 20140711
  Serious: Yes (Death)
  Sender: FDA-Public Use
  Company Number: 2013-US-003127

PATIENT
  Age: 76 Year
  Sex: Male

DRUGS (2)
  1. PRIALT [Suspect]
     Indication: PAIN
     Route: 037
  2. PRIALT [Suspect]
     Indication: SPINAL COLUMN STENOSIS
     Route: 037

REACTIONS (1)
  - Death [None]
